FAERS Safety Report 20175361 (Version 1)
Quarter: 2021Q4

REPORT INFORMATION
  Report Type: Spontaneous
  Country: CA (occurrence: CA)
  Receive Date: 20211213
  Receipt Date: 20211213
  Transmission Date: 20220303
  Serious: Yes (Other)
  Sender: FDA-Public Use
  Company Number: CA-BAXTER-2021BAX035959

PATIENT
  Age: 65 Year
  Sex: Male

DRUGS (2)
  1. AMINO ACIDS\ELECTROLYTES NOS [Suspect]
     Active Substance: AMINO ACIDS\ELECTROLYTES NOS
     Indication: Pharyngeal fistula
     Route: 042
     Dates: start: 20210913, end: 20211008
  2. SODIUM CHLORIDE [Suspect]
     Active Substance: SODIUM CHLORIDE
     Indication: Product used for unknown indication
     Route: 042

REACTIONS (4)
  - Respiratory failure [Unknown]
  - Metabolic acidosis [Unknown]
  - Hyperchloraemia [Recovering/Resolving]
  - General physical health deterioration [Unknown]

NARRATIVE: CASE EVENT DATE: 20210901
